FAERS Safety Report 5191298-3 (Version None)
Quarter: 2006Q4

REPORT INFORMATION
  Report Type: 
  Country: None (occurrence: None)
  Receive Date: 20061218
  Receipt Date: 20061206
  Transmission Date: 20070319
  Serious: Yes (Hospitalization)
  Sender: FDA-Public Use
  Company Number: 150744ISR

PATIENT
  Age: 69 Year

DRUGS (1)
  1. TRIMETHOPRIM [Suspect]
     Indication: URINARY TRACT INFECTION
     Dosage: (200 MG) ORAL
     Route: 048
     Dates: start: 20061030, end: 20061031

REACTIONS (2)
  - PYELONEPHRITIS [None]
  - SEPSIS [None]
